FAERS Safety Report 6314212-3 (Version None)
Quarter: 2009Q3

REPORT INFORMATION
  Report Type: 
  Country: None (occurrence: None)
  Receive Date: 20090817
  Receipt Date: 20090803
  Transmission Date: 20100115
  Serious: Yes (Death, Hospitalization)
  Sender: FDA-Public Use
  Company Number: 2009AL001995

PATIENT
  Age: 65 Year
  Sex: Female
  Weight: 75.7507 kg

DRUGS (67)
  1. DIGOXIN [Suspect]
     Dosage: 0.25MG, DAILY, PO, 0.125MG, DAILY, PO
     Route: 048
     Dates: start: 20061003
  2. INSULIN [Concomitant]
  3. SPIRONOLACTONE [Concomitant]
  4. TICLOPIDINE HCL [Concomitant]
  5. TIOTROPIUM [Concomitant]
  6. ASPIRIN [Concomitant]
  7. FUROSEMIDE [Concomitant]
  8. PREDNISONE TAB [Concomitant]
  9. LOSARTAN [Concomitant]
  10. SALMETEROL [Concomitant]
  11. BUDESONIDE [Concomitant]
  12. ACETAMINOPHEN [Concomitant]
  13. METOPROLOL [Concomitant]
  14. ACETYLCYSTEINE [Concomitant]
  15. ALPRAZOLAM [Concomitant]
  16. FAMOTIDINE [Concomitant]
  17. CHOLESTYRAMINE [Concomitant]
  18. DILTIAZEM [Concomitant]
  19. LACTOBACILLUS [Concomitant]
  20. NITROGLYCERIN [Concomitant]
  21. KLOR-CON [Concomitant]
  22. SKELAXIN [Concomitant]
  23. WARFARIN [Concomitant]
  24. LEVOTHYROXINE SODIUM [Concomitant]
  25. FAMOTIDINE [Concomitant]
  26. TRAMADOL HCL [Concomitant]
  27. LOVENOX [Concomitant]
  28. AMBIEN [Concomitant]
  29. LORAZEPAM [Concomitant]
  30. VANCOMYCIN HCL [Concomitant]
  31. HUMALOG [Concomitant]
  32. MORPHINE [Concomitant]
  33. NYSTATIN [Concomitant]
  34. PAROXETINE HCL [Concomitant]
  35. POTASSIUM CHLORIDE [Concomitant]
  36. THEOPHYLLINE [Concomitant]
  37. . [Concomitant]
  38. CITALOPRAM [Concomitant]
  39. . [Concomitant]
  40. MILK OF MAGNESIA TAB [Concomitant]
  41. MAGNESIUM-ALUMINUM [Concomitant]
  42. NITROGLYCERIN [Concomitant]
  43. ALBUTEROL [Concomitant]
  44. CYCLOBENZAPRINE [Concomitant]
  45. OXYCODONE AND ACETAMINOPHEN [Concomitant]
  46. FORMOTEROL FUMARATE [Concomitant]
  47. LEVALBUTEROL HCL [Concomitant]
  48. MELATONIN [Concomitant]
  49. METAXALONE [Concomitant]
  50. DARVOCET [Concomitant]
  51. QUINIDINE HCL [Concomitant]
  52. SPIRIVA [Concomitant]
  53. ULTRAM [Concomitant]
  54. ATROVENT [Concomitant]
  55. CULTURELLE [Concomitant]
  56. COLACE [Concomitant]
  57. HUMULIN R [Concomitant]
  58. LOPERAMIDE [Concomitant]
  59. POTASSIUM CHLORIDE [Concomitant]
  60. CHLORIDE [Concomitant]
  61. ALUMINUM HYDROXIDE/MAGNESIUM HYDROXIDE/SIMETHICONE [Concomitant]
  62. SENNA [Concomitant]
  63. DOCUSATE-SENNA [Concomitant]
  64. GLYBURIDE [Concomitant]
  65. CLOPIDOGREL [Concomitant]
  66. IPRATROPIUM [Concomitant]
  67. . [Concomitant]

REACTIONS (36)
  - ARRHYTHMIA [None]
  - ASTHMA [None]
  - BLOOD GLUCOSE INCREASED [None]
  - BLOOD POTASSIUM DECREASED [None]
  - BRAIN NATRIURETIC PEPTIDE INCREASED [None]
  - BRONCHITIS [None]
  - CARDIAC MURMUR [None]
  - CARDIOACTIVE DRUG LEVEL INCREASED [None]
  - CHILLS [None]
  - CHRONIC OBSTRUCTIVE PULMONARY DISEASE [None]
  - CLOSTRIDIUM DIFFICILE COLITIS [None]
  - CONDITION AGGRAVATED [None]
  - DEEP VEIN THROMBOSIS [None]
  - DEPRESSION [None]
  - DIVERTICULITIS [None]
  - DYSPNOEA PAROXYSMAL NOCTURNAL [None]
  - ECONOMIC PROBLEM [None]
  - EJECTION FRACTION DECREASED [None]
  - GAIT DISTURBANCE [None]
  - HEART RATE INCREASED [None]
  - HYPERHIDROSIS [None]
  - HYPERSOMNIA [None]
  - INCREASED APPETITE [None]
  - INJURY [None]
  - KYPHOSIS [None]
  - MITRAL VALVE INCOMPETENCE [None]
  - MYOCARDIAL INFARCTION [None]
  - ORTHOPNOEA [None]
  - OSTEOPENIA [None]
  - PERICARDIAL EFFUSION [None]
  - PNEUMONIA [None]
  - PULMONARY EMBOLISM [None]
  - RHINORRHOEA [None]
  - SURGERY [None]
  - UNEVALUABLE EVENT [None]
  - WEIGHT DECREASED [None]
